FAERS Safety Report 9607327 (Version 1)
Quarter: 2013Q4

REPORT INFORMATION
  Report Type: Spontaneous
  Country: US (occurrence: None)
  Receive Date: 20131007
  Receipt Date: 20131007
  Transmission Date: 20140711
  Serious: No
  Sender: FDA-Public Use
  Company Number: None

PATIENT
  Age: 25 Year
  Sex: Female
  Weight: 122.47 kg

DRUGS (2)
  1. NITROFURANTOIN MONOHYDRATE [Suspect]
     Indication: URINARY TRACT INFECTION
     Dosage: 1 CAPSULE, TWICE DAILY, TAKEN BY MOUTH
     Route: 048
     Dates: start: 20130919, end: 20130923
  2. PHENYTOIN SODIUM [Concomitant]
     Dosage: 1, THREE TIMES DAILY, TAKEN BY MOUTH
     Route: 048

REACTIONS (1)
  - Chromaturia [None]
